FAERS Safety Report 4713438-X (Version None)
Quarter: 2005Q3

REPORT INFORMATION
  Report Type: 
  Country: None (occurrence: None)
  Receive Date: 20050711
  Receipt Date: 20050630
  Transmission Date: 20060218
  Serious: Yes (Death, Hospitalization)
  Sender: FDA-Public Use
  Company Number: 200511329BWH

PATIENT
  Age: 81 Year
  Sex: Female

DRUGS (13)
  1. CIPRO [Suspect]
     Indication: URINARY TRACT INFECTION
  2. CIPRO IV [Suspect]
     Indication: URINARY TRACT INFECTION
     Dates: start: 20050422, end: 20050424
  3. AMARYL [Suspect]
     Indication: DIABETES MELLITUS NON-INSULIN-DEPENDENT
     Dosage: 1 MG, OM, ORAL
     Route: 048
  4. FUROSEMIDE [Concomitant]
  5. DIGITEK [Concomitant]
  6. PREDNISONE [Concomitant]
  7. PRILOSEC [Concomitant]
  8. FLOVENT [Concomitant]
  9. MORPHINE SULFATE [Concomitant]
  10. MICRO-K [Concomitant]
  11. CARAFATE [Concomitant]
  12. TRAVATAN [Concomitant]
  13. ZYPREXA [Concomitant]

REACTIONS (7)
  - BLOOD ALKALINE PHOSPHATASE INCREASED [None]
  - BLOOD CREATININE INCREASED [None]
  - BLOOD UREA INCREASED [None]
  - DEPRESSED LEVEL OF CONSCIOUSNESS [None]
  - HYPOGLYCAEMIA [None]
  - PYREXIA [None]
  - WHITE BLOOD CELL COUNT INCREASED [None]
